FAERS Safety Report 22629584 (Version 11)
Quarter: 2024Q2

REPORT INFORMATION
  Report Type: Spontaneous
  Country: IN (occurrence: IN)
  Receive Date: 20230622
  Receipt Date: 20240620
  Transmission Date: 20240715
  Serious: Yes (Other)
  Sender: FDA-Public Use
  Company Number: IN-PFIZER INC-PV202200015297

PATIENT
  Age: 66 Year
  Sex: Female
  Weight: 65 kg

DRUGS (7)
  1. PALBOCICLIB [Suspect]
     Active Substance: PALBOCICLIB
     Indication: Breast cancer metastatic
     Dosage: 125 MG, CYCLIC (ONCE DAILY D1-D21)
     Route: 048
     Dates: start: 20220414
  2. PALBOCICLIB [Suspect]
     Active Substance: PALBOCICLIB
     Dosage: 100 MG, CYCLIC (ONCE A DAY FOR 21 DAYS THEN 7 DAYS OFF )
     Route: 048
  3. LETROZOLE [Concomitant]
     Active Substance: LETROZOLE
     Dosage: 2.5 MG, 1X/DAY TO CONTINUE
     Dates: start: 20220415
  4. CALCIUM CARBONATE\CHOLECALCIFEROL [Concomitant]
     Active Substance: CALCIUM CARBONATE\CHOLECALCIFEROL
     Dosage: 500 MG, 2X/DAY, 1 TAB BD TO CONTINUE
     Dates: start: 202204
  5. DENOSUMAB [Concomitant]
     Active Substance: DENOSUMAB
     Dosage: 125 MG
  6. CUTISOFT [Concomitant]
     Dosage: UNK
  7. RELIANCE [Concomitant]
     Dosage: 120 MG
     Route: 058

REACTIONS (29)
  - White blood cell count decreased [Unknown]
  - Tooth extraction [Unknown]
  - Rheumatoid arthritis [Unknown]
  - Bone pain [Unknown]
  - Blood pressure increased [Unknown]
  - Weight fluctuation [Unknown]
  - Abdominal pain upper [Unknown]
  - Hypoacusis [Unknown]
  - Blood creatinine decreased [Unknown]
  - Body temperature decreased [Unknown]
  - Neutrophil percentage decreased [Unknown]
  - Neutrophil count decreased [Unknown]
  - Monocyte percentage increased [Unknown]
  - Arthralgia [Unknown]
  - Rash [Unknown]
  - Decreased appetite [Unknown]
  - Ageusia [Unknown]
  - Platelet count decreased [Unknown]
  - Haemoglobin decreased [Unknown]
  - Red cell distribution width increased [Unknown]
  - Mean cell haemoglobin increased [Unknown]
  - Haematocrit decreased [Unknown]
  - Red blood cell count decreased [Unknown]
  - Mean platelet volume increased [Unknown]
  - Heart rate decreased [Unknown]
  - Uterine leiomyoma [Unknown]
  - Eastern Cooperative Oncology Group performance status abnormal [Unknown]
  - Oedema peripheral [Unknown]
  - Blood thyroid stimulating hormone decreased [Unknown]

NARRATIVE: CASE EVENT DATE: 20220101
